FAERS Safety Report 18066554 (Version 1)
Quarter: 2020Q3

REPORT INFORMATION
  Report Type: Spontaneous
  Country: US (occurrence: US)
  Receive Date: 20200724
  Receipt Date: 20200724
  Transmission Date: 20201103
  Serious: Yes (Death, Other)
  Sender: FDA-Public Use
  Company Number: US-009507513-2007USA008441

PATIENT

DRUGS (1)
  1. JANUVIA [Suspect]
     Active Substance: SITAGLIPTIN PHOSPHATE
     Dosage: UNK
     Route: 048
     Dates: start: 20080429, end: 20130612

REACTIONS (2)
  - Death [Fatal]
  - Pancreatic carcinoma [Unknown]

NARRATIVE: CASE EVENT DATE: 201609
